FAERS Safety Report 4816842-4 (Version None)
Quarter: 2005Q4

REPORT INFORMATION
  Report Type: 
  Country: None (occurrence: None)
  Receive Date: 20051101
  Receipt Date: 20051020
  Transmission Date: 20060501
  Serious: Yes (Life-Threatening, Hospitalization)
  Sender: FDA-Public Use
  Company Number: JP-JNJFOC-20051004559

PATIENT
  Sex: Male
  Weight: 60 kg

DRUGS (19)
  1. REMICADE [Suspect]
     Route: 042
  2. REMICADE [Suspect]
     Route: 042
  3. REMICADE [Suspect]
     Route: 042
  4. REMICADE [Suspect]
     Route: 042
  5. REMICADE [Suspect]
     Route: 042
  6. REMICADE [Suspect]
     Route: 042
  7. REMICADE [Suspect]
     Indication: RHEUMATOID ARTHRITIS
     Route: 042
  8. RHEUMATREX [Concomitant]
     Route: 048
  9. RHEUMATREX [Concomitant]
     Indication: RHEUMATOID ARTHRITIS
     Route: 048
  10. ISONIAZID [Concomitant]
     Indication: ANTIBIOTIC PROPHYLAXIS
     Route: 048
  11. PREDNISOLONE [Concomitant]
     Indication: RHEUMATOID ARTHRITIS
     Route: 048
  12. LIMETHASON [Concomitant]
     Indication: RHEUMATOID ARTHRITIS
     Route: 042
  13. MOBIC [Concomitant]
     Indication: RHEUMATOID ARTHRITIS
     Route: 048
  14. VOLTAREN [Concomitant]
     Indication: RHEUMATOID ARTHRITIS
  15. KETOPROFEN [Concomitant]
     Indication: RHEUMATOID ARTHRITIS
  16. SELBEX [Concomitant]
     Route: 048
  17. RENIVACE [Concomitant]
     Route: 048
  18. NORVASC [Concomitant]
     Route: 048
  19. ADRENAL HORMONE PREPARATIONS [Concomitant]
     Indication: RHEUMATOID ARTHRITIS
     Route: 048

REACTIONS (5)
  - BRONCHITIS ACUTE [None]
  - HYPERGLYCAEMIA [None]
  - HYPOAESTHESIA [None]
  - LUNG NEOPLASM MALIGNANT [None]
  - SKIN ULCER [None]
